FAERS Safety Report 7644884-2 (Version None)
Quarter: 2011Q3

REPORT INFORMATION
  Report Type: 
  Country: None (occurrence: None)
  Receive Date: 20110725
  Receipt Date: 20110713
  Transmission Date: 20111222
  Serious: Yes (Other)
  Sender: FDA-Public Use
  Company Number: 11-000787

PATIENT
  Age: 15 Year
  Sex: Female
  Weight: 62.6 kg

DRUGS (1)
  1. LOESTRIN 1/10 FE [Suspect]
     Indication: CONTRACEPTION
     Dosage: 20/1000 UG, QD, ORAL
     Route: 048
     Dates: start: 20110301, end: 20110619

REACTIONS (2)
  - GRAND MAL CONVULSION [None]
  - EPILEPSY [None]
